FAERS Safety Report 8184503-2 (Version None)
Quarter: 2012Q1

REPORT INFORMATION
  Report Type: 
  Country: None (occurrence: None)
  Receive Date: 20120305
  Receipt Date: 20120221
  Transmission Date: 20120608
  Serious: Yes (Other)
  Sender: FDA-Public Use
  Company Number: DE-CELGENEUS-062-21880-10122835

PATIENT

DRUGS (5)
  1. MELPHALAN HYDROCHLORIDE [Concomitant]
     Indication: MULTIPLE MYELOMA
     Route: 065
  2. PREDNISONE TAB [Concomitant]
     Indication: MULTIPLE MYELOMA
     Route: 065
  3. DOXORUBICIN HCL [Concomitant]
     Indication: MULTIPLE MYELOMA
     Route: 065
  4. DEXAMETHASONE [Concomitant]
     Indication: MULTIPLE MYELOMA
     Route: 065
  5. REVLIMID [Suspect]
     Indication: MULTIPLE MYELOMA
     Dosage: 25 MILLIGRAM
     Route: 048

REACTIONS (7)
  - NEUTROPENIA [None]
  - DEPRESSION [None]
  - GRAFT VERSUS HOST DISEASE [None]
  - DISORIENTATION [None]
  - TREMOR [None]
  - ARRHYTHMIA [None]
  - RASH [None]
